FAERS Safety Report 8282799-X (Version None)
Quarter: 2012Q2

REPORT INFORMATION
  Report Type: 
  Country: None (occurrence: None)
  Receive Date: 20120413
  Receipt Date: 20120330
  Transmission Date: 20120825
  Serious: Yes (Hospitalization)
  Sender: FDA-Public Use
  Company Number: JP-ROCHE-1053530

PATIENT
  Sex: Male
  Weight: 10 kg

DRUGS (5)
  1. TAMIFLU [Suspect]
     Route: 048
     Dates: start: 20120312, end: 20120312
  2. TAMIFLU [Suspect]
     Indication: INFLUENZA
     Dosage: DOSAGE IS UNCERTAIN.
     Route: 048
     Dates: start: 20120311, end: 20120311
  3. PERIACTIN [Concomitant]
     Indication: INFLUENZA
     Route: 048
     Dates: start: 20120311, end: 20120313
  4. TAMIFLU [Suspect]
     Route: 048
     Dates: start: 20120313, end: 20120313
  5. MUCODYNE [Concomitant]
     Indication: INFLUENZA
     Route: 048
     Dates: start: 20120311, end: 20120326

REACTIONS (2)
  - MUMPS [None]
  - ERYTHEMA MULTIFORME [None]
